FAERS Safety Report 7237130-5 (Version None)
Quarter: 2011Q1

REPORT INFORMATION
  Report Type: 
  Country: None (occurrence: None)
  Receive Date: 20110121
  Receipt Date: 20110114
  Transmission Date: 20110831
  Serious: Yes (Death, Other)
  Sender: FDA-Public Use
  Company Number: FR-CELGENEUS-056-20785-11011501

PATIENT

DRUGS (2)
  1. THALIDOMIDE [Suspect]
     Indication: MULTIPLE MYELOMA
     Route: 048
  2. DEXAMETHASONE [Concomitant]
     Indication: MULTIPLE MYELOMA
     Route: 065

REACTIONS (7)
  - DEEP VEIN THROMBOSIS [None]
  - MULTIPLE MYELOMA [None]
  - DEATH [None]
  - ADVERSE EVENT [None]
  - PULMONARY EMBOLISM [None]
  - NEUROPATHY PERIPHERAL [None]
  - ANAEMIA [None]
